FAERS Safety Report 4674719-1 (Version None)
Quarter: 2005Q2

REPORT INFORMATION
  Report Type: 
  Country: None (occurrence: None)
  Receive Date: 20050525
  Receipt Date: 20050520
  Transmission Date: 20051028
  Serious: Yes (Other)
  Sender: FDA-Public Use
  Company Number: 004861

PATIENT
  Sex: Female

DRUGS (4)
  1. MEDROXYPROGESTERONE ACETATE [Suspect]
     Dates: start: 19800101, end: 20010601
  2. ESTRADIOL [Suspect]
     Dates: start: 19800101, end: 20010601
  3. PREMARIN [Suspect]
     Dates: start: 19800101, end: 20010601
  4. PROVERA [Suspect]
     Dates: start: 19800101, end: 20010601

REACTIONS (1)
  - BREAST CANCER FEMALE [None]
